FAERS Safety Report 8129621-X (Version None)
Quarter: 2012Q1

REPORT INFORMATION
  Report Type: 
  Country: None (occurrence: None)
  Receive Date: 20120210
  Receipt Date: 20120201
  Transmission Date: 20120608
  Serious: Yes (Death, Hospitalization)
  Sender: FDA-Public Use
  Company Number: HU-GLAXOSMITHKLINE-B0779015A

PATIENT
  Sex: Male

DRUGS (1)
  1. ATRIANCE [Suspect]
     Indication: LEUKAEMIA
     Dosage: 7500MG PER DAY
     Route: 065
     Dates: start: 20111121, end: 20111125

REACTIONS (4)
  - PARALYSIS [None]
  - LEUKAEMIA [None]
  - HYPOAESTHESIA [None]
  - PAIN IN EXTREMITY [None]
